FAERS Safety Report 10907358 (Version 2)
Quarter: 2015Q2

REPORT INFORMATION
  Report Type: Spontaneous
  Country: US (occurrence: US)
  Receive Date: 20150312
  Receipt Date: 20150430
  Transmission Date: 20150821
  Serious: Yes (Hospitalization, Other)
  Sender: FDA-Public Use
  Company Number: US-PFIZER INC-2015082914

PATIENT
  Age: 69 Year
  Sex: Female
  Weight: 99 kg

DRUGS (8)
  1. DEPO-MEDROL [Suspect]
     Active Substance: METHYLPREDNISOLONE ACETATE
     Indication: OSTEOARTHRITIS
     Dosage: 1 CC DEPO-MEDROL MIXED WITH 6 CC OF LIDOCAINE INJECTED INTO THE KNEE JOINT
     Route: 014
     Dates: start: 20150217
  2. DEPO-MEDROL [Suspect]
     Active Substance: METHYLPREDNISOLONE ACETATE
     Dosage: UNK
  3. DEPO-MEDROL [Suspect]
     Active Substance: METHYLPREDNISOLONE ACETATE
     Dosage: UNK
  4. DEPO-MEDROL [Suspect]
     Active Substance: METHYLPREDNISOLONE ACETATE
     Dosage: UNK
  5. LIDOCAINE. [Suspect]
     Active Substance: LIDOCAINE
     Indication: ARTHRITIS
  6. CELEBREX [Concomitant]
     Active Substance: CELECOXIB
     Dosage: 400MG 2 CAPSULES
  7. DEPO-MEDROL [Suspect]
     Active Substance: METHYLPREDNISOLONE ACETATE
     Indication: ARTHRITIS
     Dosage: UNK
  8. LIDOCAINE. [Suspect]
     Active Substance: LIDOCAINE
     Indication: OSTEOARTHRITIS
     Dosage: 1 CC DEPO-MEDROL MIXED WITH 6 CC OF LIDOCAINE INJECTED INTO THE KNEE JOINT
     Route: 014
     Dates: start: 20150217

REACTIONS (3)
  - Arthritis bacterial [Not Recovered/Not Resolved]
  - Cellulitis [Unknown]
  - Staphylococcal infection [Unknown]

NARRATIVE: CASE EVENT DATE: 201502
